FAERS Safety Report 9395894 (Version 1)
Quarter: 2013Q3

REPORT INFORMATION
  Report Type: Spontaneous
  Country: FR (occurrence: FR)
  Receive Date: 20130711
  Receipt Date: 20130711
  Transmission Date: 20140515
  Serious: Yes (Other)
  Sender: FDA-Public Use
  Company Number: FR-GLAXOSMITHKLINE-B0906353A

PATIENT
  Age: 53 Year
  Sex: Female
  Weight: 72 kg

DRUGS (3)
  1. CEFUROXIM AXETIL [Suspect]
     Indication: SINUSITIS
     Dosage: 250MG TWICE PER DAY
     Route: 048
     Dates: start: 20111021, end: 20111023
  2. AERIUS [Concomitant]
     Indication: HYPERSENSITIVITY
     Route: 048
  3. SINGULAIR [Concomitant]
     Indication: ASTHMA
     Route: 048

REACTIONS (2)
  - Rash generalised [Recovered/Resolved]
  - Respiratory tract irritation [Recovered/Resolved]
